FAERS Safety Report 18814596 (Version 1)
Quarter: 2021Q1

REPORT INFORMATION
  Report Type: Spontaneous
  Country: US (occurrence: US)
  Receive Date: 20210131
  Receipt Date: 20210131
  Transmission Date: 20210419
  Serious: Yes (Hospitalization)
  Sender: FDA-Public Use
  Company Number: None

PATIENT
  Age: 2 Year
  Sex: Male
  Weight: 10.9 kg

DRUGS (6)
  1. INSULIN ?HUMALOG [Concomitant]
     Dates: start: 20191103
  2. SIROLIMUS. [Concomitant]
     Active Substance: SIROLIMUS
     Dates: start: 20201218
  3. INSULIN? LANTUS [Concomitant]
     Dates: start: 20191103
  4. NAPROXEN. [Concomitant]
     Active Substance: NAPROXEN
     Dates: start: 20210109
  5. CASIRIVIMAB/IMDEVIMAB [Suspect]
     Active Substance: CASIRIVIMAB\IMDEVIMAB
     Indication: COVID-19
     Dosage: ?          OTHER FREQUENCY:ONE TIME DOSE;?
     Route: 042
     Dates: start: 20210130, end: 20210130
  6. SYNTHROID [Concomitant]
     Active Substance: LEVOTHYROXINE SODIUM
     Dates: start: 20201020

REACTIONS (11)
  - Livedo reticularis [None]
  - Cyanosis [None]
  - Tachycardia [None]
  - Urticaria [None]
  - Insomnia [None]
  - Erythema [None]
  - Irritability [None]
  - Rash [None]
  - Anaphylactic reaction [None]
  - Hypertension [None]
  - Blood glucose increased [None]

NARRATIVE: CASE EVENT DATE: 20210130
